FAERS Safety Report 20734295 (Version 1)
Quarter: 2022Q2

REPORT INFORMATION
  Report Type: Spontaneous
  Country: US (occurrence: None)
  Receive Date: 20220420
  Receipt Date: 20220420
  Transmission Date: 20220721
  Serious: No
  Sender: FDA-Public Use
  Company Number: None

PATIENT
  Age: 94 Year
  Sex: Male
  Weight: 70.2 kg

DRUGS (19)
  1. PAXLOVID [Suspect]
     Active Substance: NIRMATRELVIR\RITONAVIR
     Indication: COVID-19
     Dosage: FREQUENCY : TWICE A DAY;?
     Route: 048
     Dates: start: 20220415, end: 20220419
  2. D3 supplement [Concomitant]
     Dates: start: 20220415
  3. Vitamin C 500MG [Concomitant]
     Dates: start: 20220415
  4. Melatonin 40MG [Concomitant]
     Dates: start: 20220415
  5. Zinc 50MG [Concomitant]
     Dates: start: 20220415
  6. MONTELUKAST [Concomitant]
     Active Substance: MONTELUKAST SODIUM
  7. FUROSEMIDE [Concomitant]
     Active Substance: FUROSEMIDE
  8. SENOKOT [Concomitant]
     Active Substance: SENNOSIDES
  9. Alprazolam 250MG [Concomitant]
  10. TAMSULOSIN [Concomitant]
     Active Substance: TAMSULOSIN
  11. ASPIRIN [Concomitant]
     Active Substance: ASPIRIN
  12. TRAMADOL [Concomitant]
     Active Substance: TRAMADOL
  13. AMOXICILLIN [Concomitant]
     Active Substance: AMOXICILLIN
  14. MINERALS\VITAMINS [Concomitant]
     Active Substance: MINERALS\VITAMINS
  15. Xyzal 50MG [Concomitant]
  16. LEVOTHYROXINE [Concomitant]
     Active Substance: LEVOTHYROXINE
  17. LEVOTHYROXINE [Concomitant]
     Active Substance: LEVOTHYROXINE
  18. METOPROLOL [Concomitant]
     Active Substance: METOPROLOL
  19. ACIDOPHILUS [Concomitant]
     Active Substance: LACTOBACILLUS ACIDOPHILUS

REACTIONS (1)
  - Incorrect dose administered [None]

NARRATIVE: CASE EVENT DATE: 20220415
